FAERS Safety Report 19431051 (Version 1)
Quarter: 2021Q2

REPORT INFORMATION
  Report Type: Spontaneous
  Country: US (occurrence: US)
  Receive Date: 20210617
  Receipt Date: 20210617
  Transmission Date: 20210717
  Serious: Yes (Death, Other)
  Sender: FDA-Public Use
  Company Number: US-PURDUE-USA-2021-0270778

PATIENT
  Sex: Male

DRUGS (2)
  1. DHC PLUS [Suspect]
     Active Substance: ACETAMINOPHEN\CAFFEINE\DIHYDROCODEINE BITARTRATE
     Indication: FOETAL EXPOSURE DURING PREGNANCY
     Dosage: UNKNOWN
     Route: 064
  2. METHADONE [Suspect]
     Active Substance: METHADONE HYDROCHLORIDE
     Indication: FOETAL EXPOSURE DURING PREGNANCY
     Dosage: UNKNOWN
     Route: 064

REACTIONS (7)
  - Emotional distress [Unknown]
  - Drug withdrawal syndrome neonatal [Unknown]
  - Sudden infant death syndrome [Fatal]
  - Drug withdrawal syndrome [Unknown]
  - Pain [Unknown]
  - Drug dependence [Unknown]
  - Foetal exposure during pregnancy [Unknown]
